FAERS Safety Report 19816116 (Version 1)
Quarter: 2021Q3

REPORT INFORMATION
  Report Type: Report from Study
  Country: GB (occurrence: GB)
  Receive Date: 20210909
  Receipt Date: 20210909
  Transmission Date: 20211014
  Serious: Yes (Other)
  Sender: FDA-Public Use
  Company Number: GB-TEVA-2021-GB-1949987

PATIENT
  Age: 71 Year
  Sex: Female

DRUGS (3)
  1. TASELISIB. [Concomitant]
     Active Substance: TASELISIB
     Indication: HORMONE RECEPTOR POSITIVE HER2 NEGATIVE BREAST CANCER
     Route: 065
  2. FULVESTRANT. [Suspect]
     Active Substance: FULVESTRANT
     Indication: HORMONE RECEPTOR POSITIVE HER2 NEGATIVE BREAST CANCER
     Route: 065
  3. PALBOCICLIB [Suspect]
     Active Substance: PALBOCICLIB
     Indication: HORMONE RECEPTOR POSITIVE HER2 NEGATIVE BREAST CANCER
     Dosage: DOSE: 125MG PER DAY FOR 3 WEEKS FOLLOWED BY 1 WEEK OFF
     Route: 048

REACTIONS (1)
  - Erythema multiforme [Recovered/Resolved]
